FAERS Safety Report 4891252-2 (Version None)
Quarter: 2006Q1

REPORT INFORMATION
  Report Type: 
  Country: None (occurrence: None)
  Receive Date: 20060125
  Receipt Date: 20060120
  Transmission Date: 20060701
  Serious: Yes (Other)
  Sender: FDA-Public Use
  Company Number: US-ROCHE-432953

PATIENT
  Age: 47 Year
  Sex: Female

DRUGS (2)
  1. PEGASYS [Suspect]
     Indication: HEPATITIS C
     Dosage: STRENGTH: 180 MCG/0.5ML, DOSAGE REGIMEN REPORTED AS 180MCG PER WEEK
     Route: 058
  2. RIBAVIRIN [Suspect]
     Indication: HEPATITIS C
     Route: 048
     Dates: start: 20060113

REACTIONS (4)
  - CONTUSION [None]
  - DIZZINESS [None]
  - LOSS OF CONSCIOUSNESS [None]
  - SYSTEMIC LUPUS ERYTHEMATOSUS [None]
